FAERS Safety Report 9206083 (Version 1)
Quarter: 2013Q2

REPORT INFORMATION
  Report Type: Spontaneous
  Country: US (occurrence: US)
  Receive Date: 20130403
  Receipt Date: 20130403
  Transmission Date: 20140414
  Serious: Yes (Other)
  Sender: FDA-Public Use
  Company Number: US-BAYER-2013-039990

PATIENT
  Sex: Female

DRUGS (4)
  1. YASMIN [Suspect]
     Dosage: UNK
     Dates: start: 200708, end: 200807
  2. YAZ [Suspect]
     Dosage: UNK
     Dates: start: 200708, end: 200807
  3. GIANVI [Suspect]
     Dosage: UNK
     Dates: start: 200708, end: 200807
  4. OCELLA [Suspect]
     Dosage: UNK
     Dates: start: 200708, end: 200807

REACTIONS (3)
  - Cholecystectomy [None]
  - Pain [None]
  - Injury [None]
